FAERS Safety Report 13008505 (Version 1)
Quarter: 2016Q4

REPORT INFORMATION
  Report Type: Spontaneous
  Country: FR (occurrence: FR)
  Receive Date: 20161208
  Receipt Date: 20161208
  Transmission Date: 20170207
  Serious: Yes (Death, Hospitalization)
  Sender: FDA-Public Use
  Company Number: FR-ACCORD-046188

PATIENT
  Age: 83 Year
  Sex: Male

DRUGS (11)
  1. CISPLATIN MYLAN [Suspect]
     Active Substance: CISPLATIN
     Indication: TRANSITIONAL CELL CARCINOMA
     Dosage: CYCLE 1 DAY 1: 134 MG,?CYCLE 2 DAY 1: 134 MG
     Route: 042
     Dates: start: 20160803, end: 20160824
  2. BISOPROLOL [Concomitant]
     Active Substance: BISOPROLOL
  3. CARBOPLATIN. [Suspect]
     Active Substance: CARBOPLATIN
     Indication: TRANSITIONAL CELL CARCINOMA
     Dosage: CYCLE 3 DAY 1: 380 MG,?CYCLE 4 DAY 1: 380 MG
     Route: 042
     Dates: start: 20160915, end: 20161006
  4. LERCANIDIPINE [Concomitant]
     Active Substance: LERCANIDIPINE
  5. ZOLPIDEM [Concomitant]
     Active Substance: ZOLPIDEM\ZOLPIDEM TARTRATE
  6. METFORMIN [Concomitant]
     Active Substance: METFORMIN HYDROCHLORIDE
  7. ESOMEPRAZOLE/ESOMEPRAZOLE MAGNESIUM/ESOMEPRAZOLE SODIUM [Concomitant]
  8. KARDEGIC [Concomitant]
     Active Substance: ASPIRIN LYSINE
  9. AMPHOTERICIN B/AMPHOTERICIN B/LIPOSOME [Concomitant]
  10. GEMCITABINE ACCORD [Suspect]
     Active Substance: GEMCITABINE HYDROCHLORIDE
     Indication: TRANSITIONAL CELL CARCINOMA
     Dosage: CYCLE 1 DAY 1, CYCLE 1 DAY 8, CYCLE 2 DAY 1: 2400 MG?CYCLE 2 DAY 8: 2350 MG?CYCLE 3 DAY 1: 1900 MG
     Route: 042
     Dates: start: 20160803, end: 20161013
  11. PERINDOPRIL/PERINDOPRIL ERBUMINE [Concomitant]

REACTIONS (4)
  - Acute respiratory distress syndrome [Fatal]
  - Off label use [Unknown]
  - Interstitial lung disease [Fatal]
  - Pleural effusion [Fatal]

NARRATIVE: CASE EVENT DATE: 20161021
